FAERS Safety Report 8615602-6 (Version None)
Quarter: 2012Q3

REPORT INFORMATION
  Report Type: 
  Country: None (occurrence: None)
  Receive Date: 20120823
  Receipt Date: 20120814
  Transmission Date: 20120928
  Serious: Yes (Other)
  Sender: FDA-Public Use
  Company Number: US-JNJFOC-20120809427

PATIENT
  Sex: Male
  Weight: 41.73 kg

DRUGS (6)
  1. REMICADE [Suspect]
     Route: 042
  2. REMICADE [Suspect]
     Indication: CROHN'S DISEASE
     Dosage: EVERY 4-8 WEEKS
     Route: 042
     Dates: start: 20040101
  3. PRILOSEC [Concomitant]
     Route: 048
  4. PROBIOTIC [Concomitant]
     Indication: GASTROINTESTINAL DISORDER
     Route: 048
  5. REMICADE [Suspect]
     Route: 042
     Dates: start: 20120101
  6. REMICADE [Suspect]
     Route: 042
     Dates: start: 20120101

REACTIONS (4)
  - FAECAL INCONTINENCE [None]
  - FAECALOMA [None]
  - CROHN'S DISEASE [None]
  - CONSTIPATION [None]
